FAERS Safety Report 13857590 (Version 5)
Quarter: 2017Q4

REPORT INFORMATION
  Report Type: Spontaneous
  Country: BR (occurrence: BR)
  Receive Date: 20170811
  Receipt Date: 20171026
  Transmission Date: 20180320
  Serious: Yes (Hospitalization, Other)
  Sender: FDA-Public Use
  Company Number: PHHY2017BR102720

PATIENT
  Sex: Male
  Weight: 79 kg

DRUGS (9)
  1. RISPERIDONE. [Suspect]
     Active Substance: RISPERIDONE
     Indication: BIPOLAR DISORDER
     Dosage: 1 DF, QD
     Route: 048
     Dates: start: 201612, end: 201701
  2. RISPERIDONE. [Suspect]
     Active Substance: RISPERIDONE
     Indication: POOR QUALITY SLEEP
     Dosage: 2 MG, QD
     Route: 048
     Dates: start: 201701
  3. BIPERIDENE [Concomitant]
     Active Substance: BIPERIDEN
     Indication: BIPOLAR DISORDER
     Dosage: 1 DF, QD
     Route: 048
     Dates: start: 201612
  4. CLONAZEPAM. [Concomitant]
     Active Substance: CLONAZEPAM
     Indication: SLEEP DISORDER
     Dosage: 1 DF, QD
     Route: 048
     Dates: start: 201612
  5. BIPERIDENE [Concomitant]
     Active Substance: BIPERIDEN
     Indication: RESTLESSNESS
  6. TRIBULUS TERRESTRIS [Concomitant]
     Active Substance: HERBALS\TRIBULUS TERRESTRIS
     Indication: PRODUCT USED FOR UNKNOWN INDICATION
     Route: 065
  7. CLONAZEPAM. [Concomitant]
     Active Substance: CLONAZEPAM
     Indication: BIPOLAR DISORDER
  8. RISPERIDONE. [Suspect]
     Active Substance: RISPERIDONE
     Dosage: 2 MG, AT NIGHT
     Route: 048
  9. LITHIUM CARBONATE. [Concomitant]
     Active Substance: LITHIUM CARBONATE
     Indication: BIPOLAR DISORDER
     Dosage: 4 DF, QD
     Route: 048
     Dates: start: 201612

REACTIONS (11)
  - Blood testosterone decreased [Unknown]
  - Cholelithiasis [Not Recovered/Not Resolved]
  - Drug ineffective [Unknown]
  - Off label use [Unknown]
  - Restlessness [Not Recovered/Not Resolved]
  - General physical health deterioration [Unknown]
  - Loss of libido [Not Recovered/Not Resolved]
  - Erectile dysfunction [Unknown]
  - Drug administration error [Unknown]
  - Alopecia [Not Recovered/Not Resolved]
  - Malaise [Unknown]
